FAERS Safety Report 8112255-0 (Version None)
Quarter: 2011Q4

REPORT INFORMATION
  Report Type: 
  Country: None (occurrence: None)
  Receive Date: 20111223
  Receipt Date: 20110407
  Transmission Date: 20120403
  Serious: Yes (Hospitalization)
  Sender: FDA-Public Use
  Company Number: PHHY2011US29597

PATIENT
  Age: 5 Year
  Sex: Female
  Weight: 20.4 kg

DRUGS (1)
  1. FOCALIN XR [Suspect]
     Indication: ATTENTION DEFICIT/HYPERACTIVITY DISORDER
     Dosage: 5 MG, ORAL
     Route: 048
     Dates: start: 20110405, end: 20110405

REACTIONS (4)
  - HALLUCINATION, VISUAL [None]
  - PRURITUS [None]
  - TREMOR [None]
  - RASH [None]
